FAERS Safety Report 7500737-1 (Version None)
Quarter: 2011Q2

REPORT INFORMATION
  Report Type: 
  Country: None (occurrence: None)
  Receive Date: 20110517
  Receipt Date: 20110505
  Transmission Date: 20111010
  Serious: Yes (Hospitalization)
  Sender: FDA-Public Use
  Company Number: DSJ-2011-08773

PATIENT
  Age: 57 Year
  Sex: Male

DRUGS (5)
  1. ASPIRIN [Suspect]
  2. AMLODIPINE BESYLATE AND OLMESARTAN MEDOXOMIL [Suspect]
     Indication: HYPERTENSION
     Dosage: 40/5 MG (1 IN 1 D),PER ORAL
     Route: 048
     Dates: start: 20110301, end: 20110425
  3. METFORMIN HCL [Concomitant]
  4. EZETIMIBE/SIMVASTATIN [Concomitant]
  5. HYDROCHLOROTHIAZIDE [Concomitant]

REACTIONS (1)
  - VASCULAR GRAFT [None]
